FAERS Safety Report 16482376 (Version 3)
Quarter: 2020Q2

REPORT INFORMATION
  Report Type: Report from Study
  Country: CH (occurrence: CH)
  Receive Date: 20190627
  Receipt Date: 20200612
  Transmission Date: 20200713
  Serious: No
  Sender: FDA-Public Use
  Company Number: CH-BEH-2019103396

PATIENT
  Age: 39 Year
  Sex: Male
  Weight: 115 kg

DRUGS (3)
  1. HIZENTRA [Suspect]
     Active Substance: HUMAN IMMUNOGLOBULIN G
     Indication: IMMUNODEFICIENCY
  2. HIZENTRA [Suspect]
     Active Substance: HUMAN IMMUNOGLOBULIN G
     Indication: HYPOGAMMAGLOBULINAEMIA
  3. HIZENTRA [Suspect]
     Active Substance: HUMAN IMMUNOGLOBULIN G
     Indication: IMMUNODEFICIENCY COMMON VARIABLE
     Dosage: 50 MILLILITER (2 INJECTION SITES), QW
     Route: 065
     Dates: start: 20190603

REACTIONS (10)
  - Nasopharyngitis [Unknown]
  - Injection site paraesthesia [Recovered/Resolved]
  - Injection site erythema [Recovered/Resolved]
  - Injection site nodule [Unknown]
  - Injection site warmth [Unknown]
  - Injection site pruritus [Unknown]
  - Injection site induration [Recovered/Resolved]
  - Injection site swelling [Not Recovered/Not Resolved]
  - Injection site extravasation [Unknown]
  - Injection site dryness [Recovered/Resolved]

NARRATIVE: CASE EVENT DATE: 20190603
